FAERS Safety Report 24249601 (Version 2)
Quarter: 2024Q3

REPORT INFORMATION
  Report Type: Spontaneous
  Country: US (occurrence: US)
  Receive Date: 20240826
  Receipt Date: 20240925
  Transmission Date: 20241017
  Serious: No
  Sender: SANOFI AVENTIS
  Company Number: US-SA-SAC20240817001011

PATIENT
  Age: 2 Year
  Sex: Male
  Weight: 12.24 kg

DRUGS (4)
  1. DUPIXENT [Suspect]
     Active Substance: DUPILUMAB
     Indication: Dermatitis atopic
     Dosage: 200 MG, Q4W
     Route: 058
     Dates: start: 20240609
  2. Aveeno anti-itch [Concomitant]
  3. CETIRIZINE HCL [Concomitant]
     Active Substance: CETIRIZINE HYDROCHLORIDE
  4. EPIPEN JR [Concomitant]
     Active Substance: EPINEPHRINE

REACTIONS (4)
  - Lacrimation increased [Recovered/Resolved]
  - Erythema [Unknown]
  - Ocular hyperaemia [Recovered/Resolved]
  - Hypersensitivity [Unknown]

NARRATIVE: CASE EVENT DATE: 20240101
